FAERS Safety Report 19522117 (Version 1)
Quarter: 2021Q3

REPORT INFORMATION
  Report Type: Spontaneous
  Country: FR (occurrence: FR)
  Receive Date: 20210712
  Receipt Date: 20210712
  Transmission Date: 20211014
  Serious: Yes (Hospitalization, Other)
  Sender: FDA-Public Use
  Company Number: FR-MYLANLABS-2021M1040647

PATIENT
  Age: 27 Year
  Sex: Female

DRUGS (4)
  1. LAMICTAL [Suspect]
     Active Substance: LAMOTRIGINE
     Dosage: 25 MILLIGRAM
     Dates: start: 20201215
  2. LAMICTAL [Suspect]
     Active Substance: LAMOTRIGINE
     Indication: BIPOLAR DISORDER
     Dosage: 250 MILLIGRAM, QD (125 MG, BID)
     Route: 065
     Dates: end: 20210106
  3. LAMICTAL [Suspect]
     Active Substance: LAMOTRIGINE
     Dosage: 250 MILLIGRAM, QD
  4. LAMOTRIGINE. [Suspect]
     Active Substance: LAMOTRIGINE
     Indication: PRODUCT USED FOR UNKNOWN INDICATION
     Dosage: START DATE: 07?JAN?2021

REACTIONS (13)
  - Monoplegia [Recovering/Resolving]
  - Seizure [Recovering/Resolving]
  - Headache [Recovered/Resolved]
  - Muscle contractions involuntary [Unknown]
  - Product odour abnormal [Unknown]
  - Tachycardia [Recovering/Resolving]
  - Palpitations [Unknown]
  - Loss of consciousness [Recovering/Resolving]
  - Abnormal behaviour [Unknown]
  - Acne [Unknown]
  - Product complaint [Unknown]
  - Epilepsy [Recovered/Resolved]
  - Visual impairment [Unknown]

NARRATIVE: CASE EVENT DATE: 2020
